FAERS Safety Report 25039860 (Version 1)
Quarter: 2025Q1

REPORT INFORMATION
  Report Type: Spontaneous
  Country: EG (occurrence: EG)
  Receive Date: 20250305
  Receipt Date: 20250305
  Transmission Date: 20250409
  Serious: Yes (Hospitalization)
  Sender: TAKEDA
  Company Number: EG-JNJFOC-20250303087

PATIENT
  Age: 43 Year
  Sex: Female
  Weight: 102 kg

DRUGS (4)
  1. VELCADE [Suspect]
     Active Substance: BORTEZOMIB
     Indication: Plasma cell myeloma
     Dates: start: 20240210, end: 20240731
  2. Lovira [Concomitant]
     Dosage: 400 MILLIGRAM, BID
     Dates: start: 202402
  3. LEVOFLOXACIN [Concomitant]
     Active Substance: LEVOFLOXACIN
     Dosage: 500 MILLIGRAM, QD
     Dates: start: 202402
  4. LENALIDOMIDE [Concomitant]
     Active Substance: LENALIDOMIDE
     Dosage: 5 MILLIGRAM, QD
     Dates: start: 202402

REACTIONS (4)
  - Bone marrow transplant [Unknown]
  - Muscular weakness [Unknown]
  - Bone pain [Unknown]
  - Limb discomfort [Unknown]

NARRATIVE: CASE EVENT DATE: 20240808
